FAERS Safety Report 17095408 (Version 1)
Quarter: 2019Q4

REPORT INFORMATION
  Report Type: Spontaneous
  Country: FR (occurrence: FR)
  Receive Date: 20191201
  Receipt Date: 20191201
  Transmission Date: 20200122
  Serious: Yes (Disabling, Congenital Anomaly)
  Sender: FDA-Public Use
  Company Number: NVSC2019FR051238

PATIENT
  Sex: Female
  Weight: 3 kg

DRUGS (3)
  1. SERESTA [Suspect]
     Active Substance: OXAZEPAM
     Indication: FOETAL EXPOSURE DURING PREGNANCY
     Dosage: MATERNAL DOSE: 2.5 MG, QD
     Route: 064
     Dates: start: 201711, end: 20180707
  2. ANAFRANIL [Suspect]
     Active Substance: CLOMIPRAMINE HYDROCHLORIDE
     Indication: FOETAL EXPOSURE DURING PREGNANCY
     Dosage: MATERNAL DOSE: 1.5 DF, QD
     Route: 064
     Dates: start: 201711, end: 20180707
  3. EUPHYTOSE [Suspect]
     Active Substance: HERBALS
     Indication: FOETAL EXPOSURE DURING PREGNANCY
     Dosage: MATERNAL DOSE: 6 DF, QD
     Route: 064
     Dates: start: 201711, end: 20180707

REACTIONS (5)
  - Mitral valve incompetence [Recovered/Resolved]
  - Pulmonary arterial hypertension [Recovered/Resolved]
  - Hypotonia [Not Recovered/Not Resolved]
  - Atrial septal defect [Not Recovered/Not Resolved]
  - Patent ductus arteriosus [Recovered/Resolved]

NARRATIVE: CASE EVENT DATE: 2018
